FAERS Safety Report 23150599 (Version 1)
Quarter: 2023Q4

REPORT INFORMATION
  Report Type: Spontaneous
  Country: CN (occurrence: CN)
  Receive Date: 20231106
  Receipt Date: 20231106
  Transmission Date: 20240110
  Serious: Yes (Other)
  Sender: FDA-Public Use
  Company Number: CN-PFIZER INC-PV202300179018

PATIENT
  Age: 4 Year
  Sex: Male
  Weight: 15.3 kg

DRUGS (6)
  1. METHOTREXATE SODIUM [Suspect]
     Active Substance: METHOTREXATE SODIUM
     Indication: Prophylaxis
     Dosage: 12.5 MG, 1X/DAY
     Route: 037
     Dates: start: 20231028, end: 20231028
  2. METHOTREXATE SODIUM [Suspect]
     Active Substance: METHOTREXATE SODIUM
     Indication: Leukaemia
  3. CYTARABINE [Suspect]
     Active Substance: CYTARABINE
     Indication: Prophylaxis
     Dosage: 35 MG, 1X/DAY
     Route: 037
     Dates: start: 20231028, end: 20231028
  4. CYTARABINE [Suspect]
     Active Substance: CYTARABINE
     Indication: Leukaemia
  5. DEXAMETHASONE SODIUM PHOSPHATE [Suspect]
     Active Substance: DEXAMETHASONE SODIUM PHOSPHATE
     Indication: Prophylaxis
     Dosage: 5 MG, 1X/DAY
     Route: 037
     Dates: start: 20231028, end: 20231028
  6. DEXAMETHASONE SODIUM PHOSPHATE [Suspect]
     Active Substance: DEXAMETHASONE SODIUM PHOSPHATE
     Indication: Leukaemia

REACTIONS (5)
  - Altered state of consciousness [Recovering/Resolving]
  - Indifference [Recovering/Resolving]
  - Confusional state [Unknown]
  - Mental status changes [Unknown]
  - Off label use [Unknown]

NARRATIVE: CASE EVENT DATE: 20231028
